FAERS Safety Report 18882548 (Version 1)
Quarter: 2021Q1

REPORT INFORMATION
  Report Type: Spontaneous
  Country: US (occurrence: US)
  Receive Date: 20210212
  Receipt Date: 20210212
  Transmission Date: 20210420
  Serious: No
  Sender: FDA-Public Use
  Company Number: US-RECORDATI RARE DISEASES-2106666

PATIENT
  Age: 74 Year
  Sex: Female

DRUGS (5)
  1. CYSTADANE [Suspect]
     Active Substance: BETAINE
     Indication: PRODUCT USED FOR UNKNOWN INDICATION
  2. VALSARTAN. [Concomitant]
     Active Substance: VALSARTAN
  3. COREG [Concomitant]
     Active Substance: CARVEDILOL
  4. LIPITOR [Concomitant]
     Active Substance: ATORVASTATIN CALCIUM
  5. PLAVIX [Concomitant]
     Active Substance: CLOPIDOGREL BISULFATE

REACTIONS (5)
  - Arthritis [Unknown]
  - Pain [Recovering/Resolving]
  - Blood cholesterol increased [Unknown]
  - Product use issue [Unknown]
  - Bone density abnormal [Unknown]

NARRATIVE: CASE EVENT DATE: 20200915
